FAERS Safety Report 8301709-X (Version None)
Quarter: 2012Q2

REPORT INFORMATION
  Report Type: 
  Country: None (occurrence: None)
  Receive Date: 20120417
  Receipt Date: 20120402
  Transmission Date: 20120825
  Serious: Yes (Hospitalization)
  Sender: FDA-Public Use
  Company Number: B0792301A

PATIENT
  Age: 58 Year
  Sex: Male

DRUGS (2)
  1. TIZANIDINE HCL [Suspect]
     Indication: MUSCLE RELAXANT THERAPY
  2. CEFUROXIME SODIUM [Suspect]
     Indication: PNEUMONIA

REACTIONS (5)
  - TOXIC SKIN ERUPTION [None]
  - ONYCHOMYCOSIS [None]
  - SKIN PLAQUE [None]
  - PRURITUS [None]
  - ERYTHEMA [None]
